FAERS Safety Report 20651139 (Version 1)
Quarter: 2022Q1

REPORT INFORMATION
  Report Type: Spontaneous
  Country: JP (occurrence: JP)
  Receive Date: 20220329
  Receipt Date: 20220329
  Transmission Date: 20220424
  Serious: Yes (Other)
  Sender: FDA-Public Use
  Company Number: JP-TEVA-2022-JP-2021379

PATIENT
  Age: 81 Year
  Sex: Female

DRUGS (8)
  1. CELECOXIB [Suspect]
     Active Substance: CELECOXIB
     Indication: Scleritis
     Dosage: 200 MILLIGRAM DAILY;
     Route: 065
  2. BETAMETHASONE [Suspect]
     Active Substance: BETAMETHASONE
     Indication: Scleritis
     Dosage: FOUR DROPS
     Route: 047
  3. TRIAMCINOLONE ACETONIDE [Suspect]
     Active Substance: TRIAMCINOLONE ACETONIDE
     Indication: Scleritis
     Route: 057
  4. TRIAMCINOLONE ACETONIDE [Suspect]
     Active Substance: TRIAMCINOLONE ACETONIDE
     Dosage: SUB-TENON INJECTION
     Route: 047
  5. ABATACEPT [Suspect]
     Active Substance: ABATACEPT
     Indication: Scleritis
     Route: 065
  6. GOLIMUMAB [Suspect]
     Active Substance: GOLIMUMAB
     Indication: Scleritis
     Route: 065
  7. PREDNISOLONE [Concomitant]
     Active Substance: PREDNISOLONE
     Indication: Immunosuppressant drug therapy
     Dosage: 4 MILLIGRAM DAILY;
     Route: 065
  8. TACROLIMUS [Concomitant]
     Active Substance: TACROLIMUS
     Indication: Immunosuppressant drug therapy
     Dosage: 2 MILLIGRAM DAILY;
     Route: 065

REACTIONS (3)
  - Scleritis [Recovered/Resolved]
  - Paradoxical drug reaction [Unknown]
  - Drug ineffective [Unknown]
